FAERS Safety Report 5730494-0 (Version None)
Quarter: 2008Q2

REPORT INFORMATION
  Report Type: 
  Country: None (occurrence: None)
  Receive Date: 20080507
  Receipt Date: 20080422
  Transmission Date: 20081010
  Serious: Yes (Hospitalization, Other)
  Sender: FDA-Public Use
  Company Number: FR-JNJFOC-20080407453

PATIENT
  Age: 67 Year
  Sex: Male

DRUGS (5)
  1. CONTRAMAL [Suspect]
     Indication: BACK PAIN
     Route: 048
  2. ETHANOL [Suspect]
     Indication: ALCOHOLISM
     Route: 065
  3. DAFALGAN [Concomitant]
     Route: 065
  4. NAPROXEN [Concomitant]
     Route: 065
  5. CLONAZEPAM [Concomitant]
     Route: 065

REACTIONS (5)
  - AMNESIA [None]
  - BALANCE DISORDER [None]
  - FALL [None]
  - LOSS OF CONSCIOUSNESS [None]
  - MALAISE [None]
